FAERS Safety Report 14509382 (Version 1)
Quarter: 2018Q1

REPORT INFORMATION
  Report Type: Spontaneous
  Country: US (occurrence: US)
  Receive Date: 20180207
  Receipt Date: 20180207
  Transmission Date: 20180509
  Serious: No
  Sender: FDA-Public Use
  Company Number: None

PATIENT
  Age: 36 Year
  Sex: Female

DRUGS (1)
  1. HARVONI [Suspect]
     Active Substance: LEDIPASVIR\SOFOSBUVIR

REACTIONS (8)
  - Fatigue [None]
  - Headache [None]
  - Yellow skin [None]
  - Decreased appetite [None]
  - Abdominal pain upper [None]
  - Contusion [None]
  - Nausea [None]
  - Scleral discolouration [None]

NARRATIVE: CASE EVENT DATE: 20180207
